FAERS Safety Report 13625627 (Version 1)
Quarter: 2017Q2

REPORT INFORMATION
  Report Type: Spontaneous
  Country: US (occurrence: US)
  Receive Date: 20170607
  Receipt Date: 20170607
  Transmission Date: 20170830
  Serious: Yes (Hospitalization)
  Sender: FDA-Public Use
  Company Number: US-PFIZER INC-2017242875

PATIENT
  Age: 49 Year
  Sex: Female

DRUGS (1)
  1. XELJANZ XR [Suspect]
     Active Substance: TOFACITINIB CITRATE
     Indication: RHEUMATOID ARTHRITIS
     Dosage: 11 MG, DAILY
     Route: 048
     Dates: end: 201705

REACTIONS (6)
  - Blood potassium decreased [Unknown]
  - Blood pressure increased [Unknown]
  - Nausea [Unknown]
  - Dizziness [Unknown]
  - Palpitations [Unknown]
  - Condition aggravated [Unknown]

NARRATIVE: CASE EVENT DATE: 201705
